FAERS Safety Report 6288898-6 (Version None)
Quarter: 2009Q3

REPORT INFORMATION
  Report Type: 
  Country: None (occurrence: None)
  Receive Date: 20090729
  Receipt Date: 20070717
  Transmission Date: 20100115
  Serious: Yes (Other)
  Sender: FDA-Public Use
  Company Number: US-ASTRAZENECA-2006UW24644

PATIENT
  Age: 18109 Day
  Sex: Male
  Weight: 99.8 kg

DRUGS (8)
  1. SEROQUEL [Suspect]
     Route: 048
     Dates: start: 20020808
  2. PAXIL [Concomitant]
  3. AMITRIPTYLINE HCL [Concomitant]
     Dosage: STRENGTH - 25 MG, 50 MG.  DOSE- 1 MG DAILY
     Route: 048
  4. DIAZEPAM [Concomitant]
     Dosage: STRENGTH - 5 MG, 10 MG
  5. GLYBURIDE [Concomitant]
  6. NAPROXEN [Concomitant]
  7. AVANDIA [Concomitant]
     Dosage: STRENGTH - 4 MG, 8 MG.  DOSE- 1 MG DAILY
     Route: 048
  8. CYCLOBENZAPRINE HCL [Concomitant]

REACTIONS (3)
  - DIABETES MELLITUS [None]
  - DIABETIC NEUROPATHY [None]
  - DIABETIC RETINOPATHY [None]
